FAERS Safety Report 17683757 (Version 5)
Quarter: 2020Q3

REPORT INFORMATION
  Report Type: Spontaneous
  Country: US (occurrence: US)
  Receive Date: 20200420
  Receipt Date: 20200819
  Transmission Date: 20201102
  Serious: Yes (Hospitalization, Other)
  Sender: FDA-Public Use
  Company Number: US-BRISTOL-MYERS SQUIBB COMPANY-BMS-2020-031930

PATIENT
  Age: 84 Year
  Sex: Female
  Weight: 54 kg

DRUGS (3)
  1. ELIQUIS [Suspect]
     Active Substance: APIXABAN
     Indication: PRODUCT USED FOR UNKNOWN INDICATION
     Dosage: UNK
     Route: 065
  2. REMODULIN [Suspect]
     Active Substance: TREPROSTINIL
     Indication: PULMONARY ARTERIAL HYPERTENSION
     Dosage: 0.080 MICROGRAM/KILOGRAM
     Route: 041
     Dates: start: 20200305
  3. REMODULIN [Suspect]
     Active Substance: TREPROSTINIL
     Dosage: 0.080 MICROGRAM/KILOGRAM
     Route: 041

REACTIONS (9)
  - Asthenia [Unknown]
  - Colitis [Unknown]
  - Decreased appetite [Unknown]
  - Pancreatitis [Unknown]
  - Gastric infection [Unknown]
  - Gastrointestinal haemorrhage [Unknown]
  - Confusional state [Unknown]
  - Diverticulitis [Unknown]
  - Gastrointestinal disorder [Unknown]

NARRATIVE: CASE EVENT DATE: 2020
